FAERS Safety Report 5754427-6 (Version None)
Quarter: 2008Q2

REPORT INFORMATION
  Report Type: 
  Country: None (occurrence: None)
  Receive Date: 20080530
  Receipt Date: 20071206
  Transmission Date: 20081010
  Serious: No
  Sender: FDA-Public Use
  Company Number: US-BOEHRINGER INGELHEIM GMBH, GERMANY-2007-BP-04435BP

PATIENT
  Sex: Male
  Weight: 93 kg

DRUGS (29)
  1. MIRAPEX [Suspect]
     Indication: PARKINSON'S DISEASE
     Route: 048
     Dates: start: 20021029, end: 20051101
  2. ALUPENT INHALER [Concomitant]
  3. VIAGRA [Concomitant]
     Indication: ERECTILE DYSFUNCTION
  4. ASPIRIN [Concomitant]
     Indication: BLOOD CHOLESTEROL INCREASED
  5. GLUCOSAMINE-CHONDROITIN [Concomitant]
  6. MVI WITH ANTIOXIDANT [Concomitant]
  7. VITAMIN E [Concomitant]
  8. TENORMIN [Concomitant]
  9. ACETAZOLAMIDE [Concomitant]
  10. FOLIC ACID [Concomitant]
  11. FOLIC ACID [Concomitant]
     Dates: start: 20030913
  12. SINEMET [Concomitant]
     Indication: PARKINSON'S DISEASE
  13. SINEMET [Concomitant]
     Dates: start: 20060227
  14. MYSOLINE [Concomitant]
  15. INFLUENZA VACCINE [Concomitant]
     Dates: start: 20021107
  16. ATENOLOL [Concomitant]
     Indication: BLOOD CHOLESTEROL INCREASED
     Dates: start: 20030828
  17. STALEVO 100 [Concomitant]
     Indication: PARKINSON'S DISEASE
     Dates: start: 20040412, end: 20040511
  18. STALEVO 100 [Concomitant]
     Dates: start: 20040512, end: 20041107
  19. STALEVO 100 [Concomitant]
     Dates: start: 20041108, end: 20050101
  20. LOVASTATIN [Concomitant]
     Indication: BLOOD CHOLESTEROL INCREASED
  21. CIALIS [Concomitant]
     Dates: start: 20030101
  22. CO Q10 [Concomitant]
     Indication: PARKINSON'S DISEASE
     Dates: start: 20050801
  23. PROPRANOLOL [Concomitant]
     Indication: ESSENTIAL TREMOR
     Dates: start: 20041108
  24. PROPRANOLOL [Concomitant]
     Indication: HYPERTENSION
  25. AMANTADINE HCL [Concomitant]
     Indication: PARKINSON'S DISEASE
  26. SINEMET CR [Concomitant]
  27. GEMFIBROZIL [Concomitant]
     Indication: BLOOD CHOLESTEROL INCREASED
  28. COMTAN [Concomitant]
     Indication: PARKINSON'S DISEASE
  29. MEVACOR [Concomitant]

REACTIONS (3)
  - DEPRESSION [None]
  - OBSESSIVE-COMPULSIVE DISORDER [None]
  - PATHOLOGICAL GAMBLING [None]
